FAERS Safety Report 5117791-7 (Version None)
Quarter: 2006Q3

REPORT INFORMATION
  Report Type: 
  Country: None (occurrence: None)
  Receive Date: 20060926
  Receipt Date: 20060914
  Transmission Date: 20061208
  Serious: Yes (Death, Life-Threatening, Hospitalization)
  Sender: FDA-Public Use
  Company Number: 2006-02326

PATIENT
  Age: 56 Year
  Sex: Female
  Weight: 75 kg

DRUGS (3)
  1. VELCADE [Suspect]
     Indication: MULTIPLE MYELOMA
     Dosage: 2.30 MG/M2, INTRAVENOUS
     Route: 042
     Dates: start: 20060829, end: 20060901
  2. THALIDOMIDE (THALIDOMIDE) TABLET [Suspect]
     Indication: MULTIPLE MYELOMA
     Dosage: 100.00 MG, ORAL
     Route: 048
     Dates: start: 20060829, end: 20060830
  3. MEROPENEM (MEROPENEM) [Suspect]
     Indication: DRUG USE FOR UNKNOWN INDICATION
     Dosage: 2.00 G, IV DRIP
     Route: 041
     Dates: start: 20060901, end: 20060902

REACTIONS (12)
  - ASTHENIA [None]
  - BLOOD POTASSIUM DECREASED [None]
  - DEPRESSED LEVEL OF CONSCIOUSNESS [None]
  - DEPRESSION [None]
  - DIALYSIS [None]
  - FATIGUE [None]
  - LUNG INFECTION [None]
  - PLATELET COUNT DECREASED [None]
  - PYREXIA [None]
  - RENAL FAILURE ACUTE [None]
  - TACHYPNOEA [None]
  - WHEEZING [None]
